FAERS Safety Report 10257717 (Version 1)
Quarter: 2014Q2

REPORT INFORMATION
  Report Type: Spontaneous
  Country: US (occurrence: None)
  Receive Date: 20140623
  Receipt Date: 20140623
  Transmission Date: 20141212
  Serious: Yes (Hospitalization)
  Sender: FDA-Public Use
  Company Number: None

PATIENT
  Age: 65 Year
  Sex: Male
  Weight: 68.4 kg

DRUGS (1)
  1. CARBOPLATIN [Suspect]
     Indication: NON-SMALL CELL LUNG CANCER STAGE IV
     Route: 042
     Dates: start: 20140613, end: 20140613

REACTIONS (8)
  - Confusional state [None]
  - Flat affect [None]
  - Nausea [None]
  - Vomiting [None]
  - Delirium [None]
  - Somnolence [None]
  - Cognitive disorder [None]
  - Nausea [None]
